FAERS Safety Report 5986173-8 (Version None)
Quarter: 2008Q4

REPORT INFORMATION
  Report Type: 
  Country: None (occurrence: None)
  Receive Date: 20081209
  Receipt Date: 20081204
  Transmission Date: 20090506
  Serious: Yes (Other)
  Sender: FDA-Public Use
  Company Number: GB-WYE-G02722508

PATIENT
  Sex: Male
  Weight: 76 kg

DRUGS (1)
  1. IBUPROFEN TABLETS [Suspect]
     Dosage: OVERDOSE OF UNKNOWN AMOUNT
     Dates: start: 19930101

REACTIONS (2)
  - INTENTIONAL OVERDOSE [None]
  - RESPIRATORY DEPRESSION [None]
